FAERS Safety Report 6024444-X (Version None)
Quarter: 2008Q4

REPORT INFORMATION
  Report Type: 
  Country: None (occurrence: None)
  Receive Date: 20081231
  Receipt Date: 20081223
  Transmission Date: 20090506
  Serious: Yes (Hospitalization, Other)
  Sender: FDA-Public Use
  Company Number: PHEH2008US10960

PATIENT
  Age: 76 Year
  Sex: Male

DRUGS (1)
  1. GLEEVEC [Suspect]
     Indication: LEUKAEMIA
     Dosage: 400 MG, QD
     Route: 048
     Dates: start: 20030101

REACTIONS (6)
  - DYSPNOEA [None]
  - FATIGUE [None]
  - HAEMATOCHEZIA [None]
  - HEPATIC NEOPLASM MALIGNANT [None]
  - MEMORY IMPAIRMENT [None]
  - VOMITING [None]
